FAERS Safety Report 13996646 (Version 1)
Quarter: 2017Q3

REPORT INFORMATION
  Report Type: Spontaneous
  Country: US (occurrence: US)
  Receive Date: 20170921
  Receipt Date: 20170921
  Transmission Date: 20171128
  Serious: No
  Sender: FDA-Public Use
  Company Number: US-ALLERGAN-1726640US

PATIENT
  Age: 63 Year
  Sex: Female

DRUGS (3)
  1. VIBERZI [Suspect]
     Active Substance: ELUXADOLINE
     Indication: IRRITABLE BOWEL SYNDROME
     Dosage: 75 MG, BID
     Route: 048
     Dates: start: 20170608, end: 201706
  2. PANCREATIC ENZYMES [Concomitant]
     Active Substance: UNSPECIFIED INGREDIENT
     Indication: PANCREATIC FAILURE
     Dosage: UNK
     Dates: start: 1997
  3. PROBIOTICS NOS [Concomitant]
     Active Substance: PROBIOTICS NOS
     Indication: PANCREATIC FAILURE
     Dosage: UNK
     Dates: start: 1997

REACTIONS (8)
  - Phantom pain [Recovering/Resolving]
  - Contraindicated product administered [Unknown]
  - Abdominal pain [Recovering/Resolving]
  - Asthenia [Unknown]
  - Irritable bowel syndrome [Unknown]
  - Abdominal distension [Recovered/Resolved]
  - Diarrhoea [Unknown]
  - Nervousness [Unknown]

NARRATIVE: CASE EVENT DATE: 201706
